FAERS Safety Report 20073813 (Version 2)
Quarter: 2022Q1

REPORT INFORMATION
  Report Type: Report from Study
  Country: US (occurrence: US)
  Receive Date: 20211116
  Receipt Date: 20220205
  Transmission Date: 20220424
  Serious: Yes (Hospitalization, Other)
  Sender: FDA-Public Use
  Company Number: US-SA-2016SA232367

PATIENT
  Age: 62 Year
  Sex: Male

DRUGS (22)
  1. TERIFLUNOMIDE [Suspect]
     Active Substance: TERIFLUNOMIDE
     Indication: Multiple sclerosis
     Dosage: 7 MG, QD
     Route: 048
  2. TERIFLUNOMIDE [Suspect]
     Active Substance: TERIFLUNOMIDE
     Dosage: 14 MG, QD
     Route: 048
     Dates: start: 20160921
  3. TERIFLUNOMIDE [Suspect]
     Active Substance: TERIFLUNOMIDE
     Dosage: 14 MG, QD
     Route: 048
     Dates: start: 20161010
  4. TERIFLUNOMIDE [Suspect]
     Active Substance: TERIFLUNOMIDE
     Dosage: 14 MG, QD
     Route: 048
     Dates: start: 20180529
  5. TERIFLUNOMIDE [Suspect]
     Active Substance: TERIFLUNOMIDE
     Dosage: 14 MG, QD
     Route: 048
     Dates: start: 20180530
  6. TYLENOL [Suspect]
     Active Substance: ACETAMINOPHEN
     Indication: Headache
     Dosage: UNK
  7. ACETAMINOPHEN\CAFFEINE [Suspect]
     Active Substance: ACETAMINOPHEN\CAFFEINE
     Indication: Headache
  8. BACLOFEN [Suspect]
     Active Substance: BACLOFEN
     Dosage: UNK UNK,UNK
     Route: 065
  9. AMPYRA [Suspect]
     Active Substance: DALFAMPRIDINE
     Indication: Multiple sclerosis
     Dosage: 10 MG, Q12H
     Route: 048
     Dates: start: 20160710, end: 20160813
  10. AMPYRA [Suspect]
     Active Substance: DALFAMPRIDINE
     Dosage: 10 MG, Q12H
     Dates: start: 20160828
  11. AMPYRA [Suspect]
     Active Substance: DALFAMPRIDINE
     Dosage: 10 MG, Q12H
  12. TORADOL [Suspect]
     Active Substance: KETOROLAC TROMETHAMINE
     Dosage: UNK
  13. REBIF [Suspect]
     Active Substance: INTERFERON BETA-1A
     Dosage: UNK
     Route: 065
  14. DALFAMPRIDINE [Suspect]
     Active Substance: DALFAMPRIDINE
     Dosage: UNK
     Route: 065
  15. BEE POLLEN [Concomitant]
     Active Substance: BEE POLLEN
     Dosage: UNK
     Route: 065
  16. FISH OIL [Concomitant]
     Active Substance: FISH OIL
     Dosage: UNK UNK,UNK
     Route: 065
  17. VITAMIN D3 [Concomitant]
     Active Substance: CHOLECALCIFEROL
     Dosage: UNK
     Route: 065
  18. VITAMIN D3 [Concomitant]
     Active Substance: CHOLECALCIFEROL
     Dosage: 120MG
     Route: 065
  19. VITAMIN D3 [Concomitant]
     Active Substance: CHOLECALCIFEROL
  20. AMPHETAMINE SULFATE [Concomitant]
     Active Substance: AMPHETAMINE SULFATE
     Dosage: 5 MG, UNK
     Route: 065
  21. AMPHETAMINE SULFATE [Concomitant]
     Active Substance: AMPHETAMINE SULFATE
  22. LEVOTHYROXINE SODIUM [Concomitant]
     Active Substance: LEVOTHYROXINE SODIUM
     Dosage: 25 UG
     Route: 065

REACTIONS (36)
  - Gastrointestinal haemorrhage [Not Recovered/Not Resolved]
  - Heart rate decreased [Unknown]
  - Drug interaction [Unknown]
  - Animal bite [Unknown]
  - Haematocrit decreased [Not Recovered/Not Resolved]
  - Haemoglobin decreased [Not Recovered/Not Resolved]
  - Headache [Not Recovered/Not Resolved]
  - Joint swelling [Not Recovered/Not Resolved]
  - Peripheral swelling [Not Recovered/Not Resolved]
  - Fall [Unknown]
  - Rib fracture [Unknown]
  - Scapula fracture [Unknown]
  - Rotator cuff syndrome [Unknown]
  - Fatigue [Unknown]
  - Unevaluable event [Unknown]
  - Hypoaesthesia [Unknown]
  - Full blood count abnormal [Unknown]
  - Peripheral swelling [Recovering/Resolving]
  - Oedema peripheral [Unknown]
  - Balance disorder [Unknown]
  - Disturbance in attention [Unknown]
  - Asthenia [Unknown]
  - Eructation [Unknown]
  - Back disorder [Not Recovered/Not Resolved]
  - Intervertebral disc protrusion [Unknown]
  - Condition aggravated [Unknown]
  - Mobility decreased [Unknown]
  - Condition aggravated [Unknown]
  - Influenza like illness [Unknown]
  - Cough [Unknown]
  - Weight decreased [Unknown]
  - Back pain [Unknown]
  - Pain in extremity [Unknown]
  - Diarrhoea [Unknown]
  - Arthralgia [Unknown]
  - Alopecia [Not Recovered/Not Resolved]

NARRATIVE: CASE EVENT DATE: 20161201
